FAERS Safety Report 9120686 (Version 1)
Quarter: 2013Q1

REPORT INFORMATION
  Report Type: Report from Study
  Country: US (occurrence: US)
  Receive Date: 20130226
  Receipt Date: 20130226
  Transmission Date: 20140127
  Serious: Yes (Hospitalization)
  Sender: FDA-Public Use
  Company Number: US-UCBSA-002438

PATIENT
  Age: 62 Year
  Sex: Female

DRUGS (17)
  1. LACOSAMIDE [Suspect]
     Indication: EPILEPSY
     Route: 048
     Dates: start: 20090824
  2. LACOSAMIDE [Suspect]
     Indication: EPILEPSY
     Dosage: 100 MG IN THE MORNING AND 150 MG AT NIGHT
     Route: 048
  3. LACOSAMIDE [Suspect]
     Indication: EPILEPSY
     Route: 048
  4. TAMIFLU [Concomitant]
     Indication: INFLUENZA
     Dates: start: 20091008, end: 20091012
  5. ZITHROMAX [Concomitant]
     Indication: INFLUENZA
     Dates: start: 20091008, end: 20091008
  6. ZITHROMAX [Concomitant]
     Indication: INFLUENZA
     Dates: start: 20091009, end: 20091012
  7. KLONOPIN [Concomitant]
     Indication: ANXIETY
     Dates: start: 200407
  8. FEMARA [Concomitant]
     Indication: HORMONE LEVEL ABNORMAL
     Dates: start: 200501
  9. PROVIGIL [Concomitant]
     Indication: FATIGUE
     Dates: start: 200607
  10. RECLAST [Concomitant]
     Indication: OSTEOPOROSIS
     Dosage: YEARLY
     Dates: start: 200704
  11. LYRICA [Concomitant]
     Dates: start: 200707, end: 20090924
  12. LYRICA [Concomitant]
     Dates: start: 20090925, end: 20091020
  13. LYRICA [Concomitant]
     Dates: start: 20091112, end: 20091113
  14. CARBATROL [Concomitant]
     Dates: start: 200903, end: 20090827
  15. CARBATROL [Concomitant]
     Dates: start: 200903, end: 20090827
  16. CARBATROL [Concomitant]
     Dates: start: 20090828
  17. LEXEPRO [Concomitant]
     Indication: DEPRESSION
     Dates: start: 20091113

REACTIONS (2)
  - Depression suicidal [Recovered/Resolved]
  - Convulsion [Recovered/Resolved]
